FAERS Safety Report 5606484-5 (Version None)
Quarter: 2008Q1

REPORT INFORMATION
  Report Type: 
  Country: None (occurrence: None)
  Receive Date: 20080125
  Receipt Date: 20080114
  Transmission Date: 20080703
  Serious: Yes (Other)
  Sender: FDA-Public Use
  Company Number: 2007EN000309

PATIENT
  Age: 68 Year
  Sex: Female

DRUGS (7)
  1. OPANA ER [Suspect]
     Indication: BACK PAIN
     Dosage: 1 TAB BID, PER ORAL
     Route: 048
     Dates: start: 20070823, end: 20070905
  2. OPANA ER [Suspect]
     Indication: SPINAL OSTEOARTHRITIS
     Dosage: 1 TAB BID, PER ORAL
     Route: 048
     Dates: start: 20070823, end: 20070905
  3. PERCOCET [Concomitant]
  4. TYLENOL (CAPLET) [Concomitant]
  5. AMBIEN [Concomitant]
  6. LESCOL XL [Concomitant]
  7. MICARDIS HCT [Concomitant]

REACTIONS (2)
  - CONVERSION DISORDER [None]
  - DELUSION [None]
